FAERS Safety Report 24146340 (Version 5)
Quarter: 2025Q1

REPORT INFORMATION
  Report Type: Report from Study
  Country: DE (occurrence: DE)
  Receive Date: 20240729
  Receipt Date: 20250228
  Transmission Date: 20250409
  Serious: Yes (Other)
  Sender: JOHNSON AND JOHNSON
  Company Number: DE-JNJFOC-20240757416

PATIENT
  Age: 66 Year
  Sex: Male

DRUGS (3)
  1. TECLISTAMAB [Suspect]
     Active Substance: TECLISTAMAB
     Indication: Plasma cell myeloma
     Route: 065
     Dates: start: 20220722, end: 20220722
  2. TECLISTAMAB [Suspect]
     Active Substance: TECLISTAMAB
     Route: 065
     Dates: start: 20220726, end: 20220726
  3. TECLISTAMAB [Suspect]
     Active Substance: TECLISTAMAB
     Route: 065
     Dates: start: 20220729, end: 20220729

REACTIONS (6)
  - Cytokine release syndrome [Recovered/Resolved]
  - Hypokalaemia [Recovered/Resolved]
  - Leukopenia [Recovered/Resolved]
  - Anaemia [Recovered/Resolved]
  - Diarrhoea [Recovered/Resolved]
  - Lymphopenia [Not Recovered/Not Resolved]

NARRATIVE: CASE EVENT DATE: 20220722
